FAERS Safety Report 9148369 (Version 1)
Quarter: 2013Q1

REPORT INFORMATION
  Report Type: Spontaneous
  Country: US (occurrence: US)
  Receive Date: 20130308
  Receipt Date: 20130308
  Transmission Date: 20140127
  Serious: No
  Sender: FDA-Public Use
  Company Number: US-ENDO PHARMACEUTICALS INC.-SPLN20120179

PATIENT
  Age: 9 Year
  Sex: Female

DRUGS (3)
  1. SUPPRELIN LA [Suspect]
     Indication: PRECOCIOUS PUBERTY
     Route: 058
     Dates: start: 20121024
  2. SUPPRELIN LA [Suspect]
     Route: 058
     Dates: start: 20111019, end: 201210
  3. LEVOTHYROXINE SODIUM TABLETS [Concomitant]
     Indication: THYROID DISORDER
     Dosage: UNKNOWN
     Route: 048

REACTIONS (4)
  - Scab [Not Recovered/Not Resolved]
  - Breast discolouration [Not Recovered/Not Resolved]
  - Nipple pain [Recovered/Resolved]
  - Breast pain [Recovered/Resolved]
